FAERS Safety Report 16321477 (Version 1)
Quarter: 2019Q2

REPORT INFORMATION
  Report Type: Spontaneous
  Country: US (occurrence: US)
  Receive Date: 20190516
  Receipt Date: 20190516
  Transmission Date: 20190711
  Serious: No
  Sender: FDA-Public Use
  Company Number: US-MTPC-MTDA2019-0005601

PATIENT

DRUGS (4)
  1. MEXILETINE HCL [Concomitant]
     Active Substance: MEXILETINE HYDROCHLORIDE
     Indication: PRODUCT USED FOR UNKNOWN INDICATION
     Route: 065
  2. RILUZOLE. [Concomitant]
     Active Substance: RILUZOLE
     Indication: PRODUCT USED FOR UNKNOWN INDICATION
     Dosage: 50 BID
     Route: 065
  3. MARIJUANA [Concomitant]
     Active Substance: CANNABIS SATIVA SUBSP. INDICA TOP
     Indication: PRODUCT USED FOR UNKNOWN INDICATION
     Dosage: UNK
     Route: 065
     Dates: start: 20180226
  4. RADICAVA [Suspect]
     Active Substance: EDARAVONE
     Indication: AMYOTROPHIC LATERAL SCLEROSIS
     Dosage: 60 MILLIGRAM
     Route: 065
     Dates: start: 20180208

REACTIONS (7)
  - Weight decreased [Not Recovered/Not Resolved]
  - Decreased appetite [Unknown]
  - Dyspnoea exertional [Unknown]
  - Discontinued product administered [Unknown]
  - Muscular weakness [Unknown]
  - Disease progression [Not Recovered/Not Resolved]
  - Dermatitis [Unknown]
